FAERS Safety Report 6450377-0 (Version None)
Quarter: 2009Q4

REPORT INFORMATION
  Report Type: 
  Country: None (occurrence: None)
  Receive Date: 20091123
  Receipt Date: 20091116
  Transmission Date: 20100525
  Serious: Yes (Other)
  Sender: FDA-Public Use
  Company Number: US-BRISTOL-MYERS SQUIBB COMPANY-14861389

PATIENT
  Age: 63 Year
  Sex: Female

DRUGS (1)
  1. MAXIPIME [Suspect]
     Indication: INFECTION
     Dates: start: 20091105, end: 20091107

REACTIONS (2)
  - HAEMOLYTIC ANAEMIA [None]
  - PLATELET COUNT INCREASED [None]
